FAERS Safety Report 8381528-9 (Version None)
Quarter: 2012Q2

REPORT INFORMATION
  Report Type: 
  Country: None (occurrence: None)
  Receive Date: 20120523
  Receipt Date: 20120426
  Transmission Date: 20120825
  Serious: No
  Sender: FDA-Public Use
  Company Number: US-ELI_LILLY_AND_COMPANY-US201204003303

PATIENT
  Sex: Male

DRUGS (1)
  1. BYDUREON [Suspect]

REACTIONS (1)
  - MYOCARDIAL INFARCTION [None]
